FAERS Safety Report 26014549 (Version 1)
Quarter: 2025Q4

REPORT INFORMATION
  Report Type: Spontaneous
  Country: CN (occurrence: CN)
  Receive Date: 20251108
  Receipt Date: 20251108
  Transmission Date: 20260118
  Serious: Yes (Hospitalization, Other)
  Sender: BOEHRINGER INGELHEIM
  Company Number: CN-BoehringerIngelheim-2025-BI-105197

PATIENT
  Age: 96 Year
  Sex: Male
  Weight: 70.500 kg

DRUGS (1)
  1. PRADAXA [Suspect]
     Active Substance: DABIGATRAN ETEXILATE MESYLATE
     Indication: Symptomatic treatment
     Dates: start: 20250901, end: 20251004

REACTIONS (4)
  - Prothrombin time abnormal [Recovering/Resolving]
  - Activated partial thromboplastin time prolonged [Unknown]
  - Thrombin time prolonged [Unknown]
  - Cerebellar haemorrhage [Recovering/Resolving]

NARRATIVE: CASE EVENT DATE: 20250928
